FAERS Safety Report 10237328 (Version 1)
Quarter: 2014Q2

REPORT INFORMATION
  Report Type: Spontaneous
  Country: DK (occurrence: DK)
  Receive Date: 20140613
  Receipt Date: 20140613
  Transmission Date: 20141212
  Serious: Yes (Death, Life-Threatening, Hospitalization)
  Sender: FDA-Public Use
  Company Number: DK-ASTRAZENECA-2014SE41093

PATIENT
  Age: 21712 Day
  Sex: Male
  Weight: 68 kg

DRUGS (9)
  1. BRILIQUE [Suspect]
     Indication: THROMBOSIS IN DEVICE
     Route: 048
     Dates: start: 20140509, end: 20140530
  2. FURIX [Concomitant]
     Indication: CARDIAC FAILURE
     Dates: start: 2012, end: 20140530
  3. ATORVASTATIN ^ACTAVIS^ [Concomitant]
     Indication: HYPERCHOLESTEROLAEMIA
     Dates: start: 2011, end: 20140530
  4. KALEORID [Concomitant]
     Indication: HYPERKALAEMIA
     Dates: start: 2012, end: 20140530
  5. MAREVAN [Concomitant]
     Indication: THROMBOSIS PROPHYLAXIS
     Dates: start: 2012, end: 20140530
  6. CORDARONE [Concomitant]
     Indication: ATRIAL FIBRILLATION
     Dates: start: 2011, end: 20140530
  7. MAGNYL ^DAK^ [Concomitant]
     Indication: THROMBOSIS PROPHYLAXIS
     Dates: start: 2011, end: 20140530
  8. CARVEDILOL [Concomitant]
     Indication: CARDIAC FAILURE
     Dates: start: 2012, end: 20140530
  9. RAMIPRIL [Concomitant]
     Indication: CARDIAC FAILURE
     Dates: start: 2011, end: 20140530

REACTIONS (10)
  - Haemorrhagic diathesis [Fatal]
  - Syncope [Fatal]
  - Cerebellar haemorrhage [Fatal]
  - Ventricular fibrillation [Fatal]
  - Brain herniation [Fatal]
  - Meningitis pneumococcal [Unknown]
  - Loss of consciousness [Unknown]
  - Intracranial pressure increased [Fatal]
  - Sepsis [Unknown]
  - Cerebral haemorrhage [Fatal]
